FAERS Safety Report 23271444 (Version 1)
Quarter: 2023Q4

REPORT INFORMATION
  Report Type: Other
  Country: GB (occurrence: GB)
  Receive Date: 20231207
  Receipt Date: 20231207
  Transmission Date: 20240109
  Serious: Yes (Other)
  Sender: FDA-Public Use
  Company Number: None

PATIENT

DRUGS (1)
  1. SERTRALINE [Suspect]
     Active Substance: SERTRALINE HYDROCHLORIDE
     Indication: Depressed mood
     Dosage: 50 MG, QD
     Route: 065
     Dates: start: 20230626, end: 20231121

REACTIONS (3)
  - Hyperhidrosis [Unknown]
  - Irritability [Unknown]
  - Depressed mood [Unknown]
